FAERS Safety Report 7240235-6 (Version None)
Quarter: 2011Q1

REPORT INFORMATION
  Report Type: 
  Country: None (occurrence: None)
  Receive Date: 20110124
  Receipt Date: 20110113
  Transmission Date: 20110831
  Serious: Yes (Other)
  Sender: FDA-Public Use
  Company Number: US-PFIZER INC-2010109118

PATIENT
  Sex: Female
  Weight: 61.678 kg

DRUGS (10)
  1. MOTRIN [Suspect]
     Indication: BACK PAIN
     Dosage: 800 MG, DAILY
     Route: 048
     Dates: end: 20100601
  2. AMOXICILLIN [Suspect]
     Dosage: 500 MG, 3X/DAY
     Dates: end: 20100101
  3. CALTRATE [Concomitant]
  4. FISH OIL [Concomitant]
     Dosage: 2400 MG, UNK
  5. LIPITOR [Suspect]
     Indication: BLOOD CHOLESTEROL INCREASED
     Dosage: 10 MG, DAILY
     Route: 048
     Dates: start: 20091001, end: 20100601
  6. ADVIL COLD AND SINUS [Suspect]
     Indication: SINUSITIS
     Dosage: 200/30 MG, DAILY
     Dates: start: 20100501, end: 20100701
  7. BACTRIM [Suspect]
     Indication: SINUSITIS
     Dosage: UNK
     Dates: start: 20100101, end: 20100401
  8. VIVELLE [Concomitant]
     Dosage: UNK
  9. MULTI-VITAMINS [Concomitant]
     Dosage: UNK
  10. ASPIRIN [Concomitant]
     Dosage: 81 MG, UNK

REACTIONS (5)
  - RASH MORBILLIFORM [None]
  - HYPERSENSITIVITY [None]
  - SINUSITIS [None]
  - URTICARIA [None]
  - BLOOD CHOLESTEROL INCREASED [None]
